FAERS Safety Report 5392282-7 (Version None)
Quarter: 2007Q3

REPORT INFORMATION
  Report Type: 
  Country: None (occurrence: None)
  Receive Date: 20070720
  Receipt Date: 20070712
  Transmission Date: 20080115
  Serious: Yes (Other)
  Sender: FDA-Public Use
  Company Number: US-ASTRAZENECA-2007UW16415

PATIENT
  Age: 65 Year
  Sex: Male

DRUGS (3)
  1. CRESTOR [Suspect]
     Route: 048
  2. NASONEX [Concomitant]
  3. FISH OIL [Concomitant]

REACTIONS (2)
  - MUSCLE INJURY [None]
  - MUSCLE RUPTURE [None]
